FAERS Safety Report 6260083-3 (Version None)
Quarter: 2009Q3

REPORT INFORMATION
  Report Type: 
  Country: None (occurrence: None)
  Receive Date: 20090708
  Receipt Date: 20090702
  Transmission Date: 20100115
  Serious: Yes (Death)
  Sender: FDA-Public Use
  Company Number: GB-NOVOPROD-269740

PATIENT
  Sex: Male
  Weight: 84 kg

DRUGS (14)
  1. NOVOLOG [Suspect]
     Indication: INSULIN-REQUIRING TYPE 2 DIABETES MELLITUS
     Dosage: 68 IU, QD
     Route: 058
     Dates: start: 20050722
  2. METHYLDOPA [Concomitant]
     Dosage: 500 MG, QD
     Route: 048
     Dates: start: 20070515
  3. CO-DYDRAMOL [Concomitant]
     Dosage: UNK MG, QD
     Route: 048
     Dates: start: 20070720
  4. LANSOPRAZOLE [Concomitant]
     Dosage: 30 MG, QD
     Route: 048
     Dates: start: 20060811
  5. AMLODIPINE [Concomitant]
     Dosage: 10 MG, QD
     Route: 048
     Dates: start: 20070221
  6. FUROSEMIDE [Concomitant]
     Dosage: 120 MG, QD
     Route: 048
     Dates: start: 20060811
  7. SENNA-MINT WAF [Concomitant]
     Dosage: 15 MG, QD
     Route: 048
     Dates: start: 20060811
  8. SPIRONOLACTONE [Concomitant]
     Dosage: 25 MG, QD
     Route: 048
     Dates: start: 20060811
  9. QUINIDINE SULPHATE [Concomitant]
     Dosage: 200 MG, QD
     Route: 048
     Dates: start: 19990111
  10. CLOPIDOGREL [Concomitant]
     Dosage: 75 MG, QD
     Route: 048
     Dates: start: 20060811
  11. GLYCERYL TRINITRATE [Concomitant]
     Dosage: UNK, QD
     Dates: start: 20070811
  12. LEVOTHYROXINE SODIUM [Concomitant]
     Dosage: 150 MG, QD
     Route: 048
     Dates: start: 20040518
  13. BISOPROLOL FUMARATE [Concomitant]
     Dosage: 2.5 MG, QD
     Route: 048
     Dates: start: 20060811
  14. GLICLAZIDE [Concomitant]

REACTIONS (1)
  - CARDIAC FAILURE [None]
